FAERS Safety Report 7281469-4 (Version None)
Quarter: 2011Q1

REPORT INFORMATION
  Report Type: 
  Country: None (occurrence: None)
  Receive Date: 20110208
  Receipt Date: 20110126
  Transmission Date: 20110831
  Serious: Yes (Other)
  Sender: FDA-Public Use
  Company Number: PHHY2011FR01251

PATIENT
  Sex: Male

DRUGS (10)
  1. AFINITOR [Suspect]
     Indication: METASTATIC RENAL CELL CARCINOMA
     Dosage: 10 MG, DAILY
     Route: 048
     Dates: start: 20100920, end: 20101112
  2. LERCAN [Concomitant]
     Dosage: 10 MG, UNK
  3. ZYLORIC [Concomitant]
  4. LEVOTHYROX [Concomitant]
     Dosage: 125 UG, UNK
  5. SELOKEN [Concomitant]
  6. TAHOR [Concomitant]
     Dosage: 40 MG, UNK
  7. ASPIRIN [Concomitant]
     Dosage: 75 MG, UNK
  8. COTAREG [Concomitant]
  9. COVERSYL [Concomitant]
  10. CORDARONE [Concomitant]
     Dosage: 1 DF, QD

REACTIONS (13)
  - HYPERGLYCAEMIA [None]
  - GAMMA-GLUTAMYLTRANSFERASE INCREASED [None]
  - EPISTAXIS [None]
  - STOMATITIS [None]
  - DECREASED APPETITE [None]
  - WEIGHT DECREASED [None]
  - VOMITING [None]
  - NAUSEA [None]
  - BLOOD LACTATE DEHYDROGENASE INCREASED [None]
  - TRANSAMINASES INCREASED [None]
  - FATIGUE [None]
  - HEPATOTOXICITY [None]
  - GENERAL PHYSICAL HEALTH DETERIORATION [None]
